FAERS Safety Report 9858376 (Version 1)
Quarter: 2014Q1

REPORT INFORMATION
  Report Type: Spontaneous
  Country: US (occurrence: US)
  Receive Date: 20140131
  Receipt Date: 20140131
  Transmission Date: 20141002
  Serious: Yes (Life-Threatening, Hospitalization)
  Sender: FDA-Public Use
  Company Number: US-DRREDDYS-USA/USA/14/0037595

PATIENT
  Age: 64 Year
  Sex: Male

DRUGS (1)
  1. AUGMENTIN [Suspect]
     Indication: PERITONITIS
     Route: 065

REACTIONS (2)
  - Sepsis [Unknown]
  - Product quality issue [Unknown]
